FAERS Safety Report 17438351 (Version 1)
Quarter: 2020Q1

REPORT INFORMATION
  Report Type: Spontaneous
  Country: CN (occurrence: CN)
  Receive Date: 20200220
  Receipt Date: 20200220
  Transmission Date: 20200409
  Serious: Yes (Other)
  Sender: FDA-Public Use
  Company Number: CN-009507513-2002CHN005410

PATIENT
  Age: 91 Year
  Sex: Female
  Weight: 30 kg

DRUGS (2)
  1. TIENAM [Suspect]
     Active Substance: CILASTATIN SODIUM\IMIPENEM
     Indication: CHRONIC OBSTRUCTIVE PULMONARY DISEASE
     Dosage: 500 MILLIGRAM, Q8H, IVGTT
     Route: 042
     Dates: start: 20191105, end: 20191109
  2. TIENAM [Suspect]
     Active Substance: CILASTATIN SODIUM\IMIPENEM
     Indication: PNEUMONIA

REACTIONS (4)
  - Cerebral atrophy [Unknown]
  - Ischaemic cerebral infarction [Unknown]
  - Tremor [Recovering/Resolving]
  - Demyelination [Unknown]

NARRATIVE: CASE EVENT DATE: 20191109
